FAERS Safety Report 17312171 (Version 1)
Quarter: 2020Q1

REPORT INFORMATION
  Report Type: Spontaneous
  Country: US (occurrence: US)
  Receive Date: 20200123
  Receipt Date: 20200123
  Transmission Date: 20200409
  Serious: No
  Sender: FDA-Public Use
  Company Number: US-NOVOPROD-686739

PATIENT
  Sex: Female

DRUGS (2)
  1. OZEMPIC [Suspect]
     Active Substance: SEMAGLUTIDE
     Indication: DIABETES MELLITUS
     Dosage: ^5 UNITS OF WHATEVER UNIT IT IS^
     Route: 058
     Dates: start: 20190916, end: 2019
  2. OZEMPIC [Suspect]
     Active Substance: SEMAGLUTIDE
     Dosage: ^5 UNITS OF WHATEVER UNIT IT IS^
     Route: 058
     Dates: start: 2019

REACTIONS (4)
  - Feeling abnormal [Unknown]
  - Nausea [Unknown]
  - Incorrect dose administered [Unknown]
  - Malaise [Unknown]

NARRATIVE: CASE EVENT DATE: 201909
